FAERS Safety Report 14747878 (Version 2)
Quarter: 2019Q1

REPORT INFORMATION
  Report Type: Spontaneous
  Country: US (occurrence: US)
  Receive Date: 20180411
  Receipt Date: 20190322
  Transmission Date: 20190417
  Serious: No
  Sender: FDA-Public Use
  Company Number: US-ENDO PHARMACEUTICALS INC-2018-016485

PATIENT
  Age: 73 Year
  Sex: Male
  Weight: 86.17 kg

DRUGS (1)
  1. AVEED [Suspect]
     Active Substance: TESTOSTERONE UNDECANOATE
     Indication: BLOOD TESTOSTERONE DECREASED
     Dosage: UNK MG, UNKNOWN
     Route: 065
     Dates: start: 20171203

REACTIONS (8)
  - Asthenia [Unknown]
  - Dry mouth [Unknown]
  - Productive cough [Unknown]
  - Increased viscosity of upper respiratory secretion [Unknown]
  - Injection site pain [Unknown]
  - Saliva discolouration [Unknown]
  - Inappropriate schedule of product administration [Unknown]
  - Drug ineffective [Unknown]

NARRATIVE: CASE EVENT DATE: 201712
